FAERS Safety Report 6697221-4 (Version None)
Quarter: 2010Q2

REPORT INFORMATION
  Report Type: 
  Country: None (occurrence: None)
  Receive Date: 20100426
  Receipt Date: 20100416
  Transmission Date: 20101027
  Serious: Yes (Life-Threatening, Hospitalization)
  Sender: FDA-Public Use
  Company Number: AU-PFIZER INC-2008063577

PATIENT
  Age: 63 Year
  Sex: Male
  Weight: 46 kg

DRUGS (17)
  1. IRINOTECAN HCL [Suspect]
     Indication: COLORECTAL CANCER
     Dosage: 220 MG, Q 2 WEEKS
     Route: 042
     Dates: start: 20080506, end: 20080714
  2. SUNITINIB MALATE [Suspect]
     Indication: COLORECTAL CANCER
     Dosage: 37.5 MG, 1X/DAY
     Route: 048
     Dates: start: 20080506, end: 20080722
  3. *FLUOROURACIL [Suspect]
     Indication: COLORECTAL CANCER
     Dosage: 500 MG, Q 2 WEEKS, LOADING DOSE
     Route: 040
     Dates: start: 20080507, end: 20080716
  4. *FLUOROURACIL [Suspect]
     Dosage: 2950 MG, Q 2 WEEKS
     Route: 042
     Dates: start: 20080507, end: 20080716
  5. *CALCIUM FOLINATE [Suspect]
     Indication: COLORECTAL CANCER
     Dosage: 240 MG, Q 2 WEEKS
     Route: 042
     Dates: start: 20080506, end: 20080714
  6. CLEXANE [Suspect]
     Dates: start: 20080412, end: 20080724
  7. ACETAMINOPHEN [Concomitant]
     Dates: start: 20080201
  8. MOVICOL [Concomitant]
     Dates: start: 20080505
  9. DEXAMETHASONE [Concomitant]
     Dates: start: 20080506
  10. GRANISETRON [Concomitant]
     Dates: start: 20080506
  11. TEMAZE [Concomitant]
     Dates: start: 20080508
  12. LOPERAMIDE [Concomitant]
     Dates: start: 20080511
  13. MYLANTA [Concomitant]
     Dates: start: 20080514
  14. ZANTAC [Concomitant]
     Dates: start: 20080514
  15. DOMPERIDONE [Concomitant]
     Dates: start: 20080614
  16. SOMAC [Concomitant]
     Dates: start: 20080614
  17. AMOXICILLIN [Concomitant]
     Dates: start: 20080608, end: 20080712

REACTIONS (2)
  - DIARRHOEA [None]
  - GASTROINTESTINAL HAEMORRHAGE [None]
